FAERS Safety Report 16154534 (Version 1)
Quarter: 2019Q2

REPORT INFORMATION
  Report Type: Spontaneous
  Country: US (occurrence: US)
  Receive Date: 20190403
  Receipt Date: 20190403
  Transmission Date: 20190711
  Serious: No
  Sender: FDA-Public Use
  Company Number: US-AKRON, INC.-2065221

PATIENT
  Sex: Female

DRUGS (1)
  1. LIDOCAINE HCL JELLY [Suspect]
     Active Substance: LIDOCAINE HYDROCHLORIDE

REACTIONS (2)
  - Pruritus [Unknown]
  - Dry skin [Unknown]
